FAERS Safety Report 17119447 (Version 1)
Quarter: 2019Q4

REPORT INFORMATION
  Report Type: Spontaneous
  Country: JP (occurrence: JP)
  Receive Date: 20191206
  Receipt Date: 20191206
  Transmission Date: 20200122
  Serious: Yes (Other)
  Sender: FDA-Public Use
  Company Number: JP-AMGEN-JPNSP2019202679

PATIENT
  Age: 92 Year
  Sex: Female

DRUGS (3)
  1. PRALIA [Suspect]
     Active Substance: DENOSUMAB
     Indication: OSTEOPOROSIS
     Dosage: 60 MG/L, Q6MO
     Route: 058
     Dates: start: 20151125
  2. RECALBON [Concomitant]
     Dosage: 50 MILLIGRAM, QD
     Route: 065
     Dates: start: 20120912, end: 20131112
  3. BENET [Concomitant]
     Active Substance: RISEDRONATE SODIUM
     Dosage: 17.5 MILLIGRAM, QD
     Route: 065
     Dates: start: 20131113, end: 20151124

REACTIONS (1)
  - Osteomyelitis [Unknown]

NARRATIVE: CASE EVENT DATE: 20191122
